FAERS Safety Report 6678720-8 (Version None)
Quarter: 2010Q2

REPORT INFORMATION
  Report Type: 
  Country: None (occurrence: None)
  Receive Date: 20100413
  Receipt Date: 20100402
  Transmission Date: 20101027
  Serious: Yes (Hospitalization, Other)
  Sender: FDA-Public Use
  Company Number: PHHY2009US57740

PATIENT
  Sex: Female
  Weight: 56.236 kg

DRUGS (2)
  1. EXJADE [Suspect]
     Dosage: 1000 MG DAILY
     Route: 048
     Dates: start: 20091028, end: 20091127
  2. EXJADE [Suspect]
     Dosage: UNK
     Route: 048

REACTIONS (2)
  - PNEUMONIA [None]
  - RENAL DISORDER [None]
